FAERS Safety Report 6170621-7 (Version None)
Quarter: 2009Q2

REPORT INFORMATION
  Report Type: 
  Country: None (occurrence: None)
  Receive Date: 20090428
  Receipt Date: 20090416
  Transmission Date: 20091009
  Serious: Yes (Death)
  Sender: FDA-Public Use
  Company Number: AU-PFIZER INC-2009189770

PATIENT

DRUGS (3)
  1. ZELDOX [Suspect]
     Dosage: UNK
     Route: 048
  2. HEROIN [Interacting]
  3. FLUANXOL ^BAYER^ [Concomitant]
     Dosage: 20 MG, UNK
     Route: 030

REACTIONS (2)
  - DRUG INTERACTION [None]
  - ELECTROCARDIOGRAM QT PROLONGED [None]
